FAERS Safety Report 6251988-8 (Version None)
Quarter: 2009Q2

REPORT INFORMATION
  Report Type: 
  Country: None (occurrence: None)
  Receive Date: 20090630
  Receipt Date: 20060101
  Transmission Date: 20091009
  Serious: Yes (Death, Hospitalization)
  Sender: FDA-Public Use
  Company Number: US-ROCHE-638316

PATIENT
  Sex: Male

DRUGS (11)
  1. ENFUVIRTIDE [Suspect]
     Route: 065
     Dates: start: 20040527
  2. ENFUVIRTIDE [Suspect]
     Route: 065
     Dates: start: 20090201, end: 20090101
  3. KALETRA [Concomitant]
     Route: 048
     Dates: start: 20040520, end: 20070914
  4. COMBIVIR [Concomitant]
     Dates: start: 20040220
  5. COMBIVIR [Concomitant]
     Dates: start: 20050201, end: 20050101
  6. VIREAD [Concomitant]
     Dosage: FRWQUENCY REPORTED AS QD
     Dates: start: 20040520
  7. VIREAD [Concomitant]
     Dosage: FRWQUENCY REPORTED AS QD
     Dates: start: 20050201, end: 20050101
  8. DIFLUCAN [Concomitant]
     Dosage: FRWQUENCY REPORTED AS QD
     Dates: start: 20030101
  9. DIFLUCAN [Concomitant]
     Dates: start: 20050201
  10. BACTRIM [Concomitant]
     Dosage: FRWQUENCY REPORTED AS QD
     Dates: start: 20040520
  11. BACTRIM [Concomitant]
     Dosage: FRWQUENCY REPORTED AS QD
     Dates: start: 20050201

REACTIONS (2)
  - ACQUIRED IMMUNODEFICIENCY SYNDROME [None]
  - PYREXIA [None]
